FAERS Safety Report 18216618 (Version 8)
Quarter: 2021Q2

REPORT INFORMATION
  Report Type: Spontaneous
  Country: JP (occurrence: JP)
  Receive Date: 20200901
  Receipt Date: 20210415
  Transmission Date: 20210717
  Serious: Yes (Death, Hospitalization, Other)
  Sender: FDA-Public Use
  Company Number: JP-ROCHE-2668873

PATIENT
  Age: 25 Year
  Sex: Female

DRUGS (10)
  1. VORICONAZOLE. [Suspect]
     Active Substance: VORICONAZOLE
     Indication: PRODUCT USED FOR UNKNOWN INDICATION
     Route: 048
  2. PREDONINE [Concomitant]
     Active Substance: PREDNISOLONE
  3. AMBISOME [Suspect]
     Active Substance: AMPHOTERICIN B
     Indication: PRODUCT USED FOR UNKNOWN INDICATION
     Route: 041
  4. VITAMIN C [Concomitant]
     Active Substance: ASCORBIC ACID
  5. VALIXA [Suspect]
     Active Substance: VALGANCICLOVIR
     Indication: STEM CELL TRANSPLANT
     Dosage: 900 MILLIGRAM
     Route: 048
  6. VALIXA [Suspect]
     Active Substance: VALGANCICLOVIR
     Route: 048
  7. ZOVIRAX [Concomitant]
     Active Substance: ACYCLOVIR
  8. DENOSINE (JAPAN) [Suspect]
     Active Substance: GANCICLOVIR
     Indication: PRODUCT USED FOR UNKNOWN INDICATION
     Dosage: SOLUTION FOR INFUSION?500 MILLIGRAM
     Route: 041
  9. PREVYMIS [Concomitant]
     Active Substance: LETERMOVIR
  10. AMPHOTERICIN B. [Concomitant]
     Active Substance: AMPHOTERICIN B
     Route: 041

REACTIONS (14)
  - Hepatic hypertrophy [Unknown]
  - Platelet transfusion [Unknown]
  - Fungal infection [Fatal]
  - Pneumocystis jirovecii pneumonia [Unknown]
  - Neutrophil count decreased [Unknown]
  - Lymphopenia [Unknown]
  - Myelosuppression [Unknown]
  - Dyspnoea [Unknown]
  - Mucormycosis [Unknown]
  - Leukaemia [Unknown]
  - Packed red blood cell transfusion [Unknown]
  - Red blood cell count decreased [Unknown]
  - Platelet count decreased [Unknown]
  - Staphylococcal infection [Unknown]
